FAERS Safety Report 5945705-6 (Version None)
Quarter: 2008Q4

REPORT INFORMATION
  Report Type: 
  Country: None (occurrence: None)
  Receive Date: 20081105
  Receipt Date: 20081030
  Transmission Date: 20090506
  Serious: Yes (Hospitalization)
  Sender: FDA-Public Use
  Company Number: 2008SP022058

PATIENT
  Age: 37 Year
  Sex: Male

DRUGS (7)
  1. CELESTAMINE TAB [Suspect]
     Indication: ARTHRALGIA
     Dosage: 4 DF; ; PO
     Route: 048
     Dates: start: 20081025, end: 20081027
  2. CELESTAMINE TAB [Suspect]
     Indication: PYREXIA
     Dosage: 4 DF; ; PO
     Route: 048
     Dates: start: 20081025, end: 20081027
  3. MEIACT (CEFDITOREN PIVOXIL) [Suspect]
     Indication: ARTHRALGIA
     Dosage: ; PO
     Route: 048
     Dates: start: 20081024, end: 20081025
  4. MEIACT (CEFDITOREN PIVOXIL) [Suspect]
     Indication: PYREXIA
     Dosage: ; PO
     Route: 048
     Dates: start: 20081024, end: 20081025
  5. NIPOLAZIN (MEQUITAZINE) [Suspect]
     Indication: ARTHRALGIA
     Dosage: ; PO
     Route: 048
     Dates: start: 20081025, end: 20081027
  6. NIPOLAZIN (MEQUITAZINE) [Suspect]
     Indication: PYREXIA
     Dosage: ; PO
     Route: 048
     Dates: start: 20081025, end: 20081027
  7. BRUFEN [Concomitant]

REACTIONS (5)
  - MYALGIA [None]
  - OEDEMA PERIPHERAL [None]
  - PAIN [None]
  - PYREXIA [None]
  - RASH ERYTHEMATOUS [None]
